FAERS Safety Report 7297986-7 (Version None)
Quarter: 2011Q1

REPORT INFORMATION
  Report Type: 
  Country: None (occurrence: None)
  Receive Date: 20110217
  Receipt Date: 20110214
  Transmission Date: 20110831
  Serious: Yes (Other)
  Sender: FDA-Public Use
  Company Number: US-PFIZER INC-2011032707

PATIENT
  Sex: Male
  Weight: 77.098 kg

DRUGS (3)
  1. LOVASTATIN [Concomitant]
     Dosage: UNK
  2. ACETYLSALICYLIC ACID [Concomitant]
     Dosage: UNK
  3. XALATAN [Suspect]
     Indication: GLAUCOMA
     Dosage: 01 GTT, DAILY
     Route: 047

REACTIONS (1)
  - RASH GENERALISED [None]
